FAERS Safety Report 6794489-0 (Version None)
Quarter: 2010Q2

REPORT INFORMATION
  Report Type: 
  Country: None (occurrence: None)
  Receive Date: 20100625
  Receipt Date: 20100615
  Transmission Date: 20101027
  Serious: Yes (Other)
  Sender: FDA-Public Use
  Company Number: JP-PFIZER INC-2010074938

PATIENT

DRUGS (1)
  1. GABAPEN [Suspect]
     Dosage: 200 MG/DAY
     Route: 048

REACTIONS (1)
  - ORTHOSTATIC HYPOTENSION [None]
